FAERS Safety Report 6880694-1 (Version None)
Quarter: 2010Q3

REPORT INFORMATION
  Report Type: 
  Country: None (occurrence: None)
  Receive Date: 20100728
  Receipt Date: 20100324
  Transmission Date: 20110219
  Serious: Yes (Other)
  Sender: FDA-Public Use
  Company Number: US-BAYER-200938596NA

PATIENT
  Age: 36 Year
  Sex: Female
  Weight: 82 kg

DRUGS (7)
  1. YAZ [Suspect]
     Indication: PRODUCT USED FOR UNKNOWN INDICATION
     Route: 048
     Dates: start: 20060101, end: 20070101
  2. SERTRALINE HYDROCHLORIDE [Concomitant]
     Dates: start: 20060101, end: 20080101
  3. TOPAMAX [Concomitant]
     Indication: MIGRAINE
     Dates: start: 20050418
  4. TOPAMAX [Concomitant]
     Dates: start: 20050418
  5. MIGRAZONE [Concomitant]
  6. PROPRANOLOL HCI [Concomitant]
     Dates: start: 20010731
  7. EXCEDRIN (MIGRAINE) [Concomitant]

REACTIONS (12)
  - BILIARY COLIC [None]
  - CEREBRAL THROMBOSIS [None]
  - CEREBROVASCULAR ACCIDENT [None]
  - CHILLS [None]
  - CONVULSION [None]
  - DIARRHOEA [None]
  - GALLBLADDER DISORDER [None]
  - HEADACHE [None]
  - HEMICEPHALALGIA [None]
  - MALAISE [None]
  - NAUSEA [None]
  - VOMITING [None]
